FAERS Safety Report 21008647 (Version 2)
Quarter: 2022Q2

REPORT INFORMATION
  Report Type: Spontaneous
  Country: BR (occurrence: BR)
  Receive Date: 20220627
  Receipt Date: 20220628
  Transmission Date: 20220720
  Serious: Yes (Other)
  Sender: FDA-Public Use
  Company Number: BR-ORGANON-O2206BRA002244

PATIENT
  Age: 23 Year
  Sex: Female

DRUGS (1)
  1. ETONOGESTREL [Suspect]
     Active Substance: ETONOGESTREL
     Dosage: 1 IMPLANT
     Route: 059
     Dates: start: 20220316

REACTIONS (4)
  - Device expulsion [Unknown]
  - Implant site discharge [Recovered/Resolved]
  - Implant site inflammation [Unknown]
  - Implant site erythema [Unknown]

NARRATIVE: CASE EVENT DATE: 20220101
